FAERS Safety Report 21492988 (Version 2)
Quarter: 2022Q4

REPORT INFORMATION
  Report Type: Spontaneous
  Country: US (occurrence: US)
  Receive Date: 20221021
  Receipt Date: 20221205
  Transmission Date: 20230113
  Serious: No
  Sender: FDA-Public Use
  Company Number: US-MYLANLABS-2022M1111128

PATIENT
  Sex: Female

DRUGS (3)
  1. ZOLOFT [Suspect]
     Active Substance: SERTRALINE HYDROCHLORIDE
     Indication: Product used for unknown indication
     Dosage: 150 MILLIGRAM
     Route: 065
  2. ZOLOFT [Suspect]
     Active Substance: SERTRALINE HYDROCHLORIDE
     Dosage: 200 MILLIGRAM
     Route: 065
  3. ZOLOFT [Suspect]
     Active Substance: SERTRALINE HYDROCHLORIDE
     Dosage: 50 MILLIGRAM
     Route: 065

REACTIONS (11)
  - Paraesthesia oral [Unknown]
  - Oral discomfort [Unknown]
  - Feeling hot [Unknown]
  - Tongue discolouration [Unknown]
  - Candida infection [Unknown]
  - Tongue exfoliation [Unknown]
  - Miliaria [Unknown]
  - Lip exfoliation [Unknown]
  - Tongue discomfort [Unknown]
  - Product lot number issue [Unknown]
  - Drug ineffective [Unknown]
